FAERS Safety Report 10346980 (Version 1)
Quarter: 2014Q3

REPORT INFORMATION
  Report Type: Spontaneous
  Country: US (occurrence: None)
  Receive Date: 20140725
  Receipt Date: 20140725
  Transmission Date: 20150326
  Serious: Yes (Other)
  Sender: FDA-Public Use
  Company Number: None

PATIENT
  Age: 25 Year
  Sex: Female
  Weight: 86.18 kg

DRUGS (1)
  1. MICONAZOLE 1 [Suspect]
     Active Substance: MICONAZOLE NITRATE
     Indication: FUNGAL INFECTION
     Route: 067
     Dates: start: 20140724, end: 20140724

REACTIONS (5)
  - Pruritus [None]
  - Burning sensation [None]
  - Dysuria [None]
  - Discomfort [None]
  - Product quality issue [None]

NARRATIVE: CASE EVENT DATE: 20140724
